FAERS Safety Report 19974779 (Version 1)
Quarter: 2021Q4

REPORT INFORMATION
  Report Type: Other
  Country: MX (occurrence: MX)
  Receive Date: 20211020
  Receipt Date: 20211020
  Transmission Date: 20220303
  Serious: Yes (Other)
  Sender: FDA-Public Use
  Company Number: MX-ROCHE-2940372

PATIENT
  Age: 41 Year
  Sex: Female

DRUGS (5)
  1. OCREVUS [Suspect]
     Active Substance: OCRELIZUMAB
     Indication: Multiple sclerosis
     Dosage: OCRELIZUMAB VIAL 300MG/10ML (30MG/ML)??ADMINISTRATION TIME?START AT 40ML / HOUR FOR 30 MINUTES?INCRE
     Route: 042
     Dates: start: 20181227
  2. ACETAMINOPHEN [Concomitant]
     Active Substance: ACETAMINOPHEN
     Dosage: UNIQUE DOSE
     Route: 048
     Dates: start: 20211014
  3. METHYLPREDNISOLONE [Concomitant]
     Active Substance: METHYLPREDNISOLONE
     Dosage: UNIQUE DOSE
     Route: 042
     Dates: start: 20211014
  4. FEXOFENADINE [Concomitant]
     Active Substance: FEXOFENADINE HYDROCHLORIDE
     Dosage: UNIQUE DOSE
     Route: 048
     Dates: start: 20211014
  5. SALINE [Concomitant]
     Active Substance: SODIUM CHLORIDE

REACTIONS (13)
  - Hypothermia [Recovered/Resolved]
  - Pharyngeal paraesthesia [Recovered/Resolved]
  - Anaphylactic reaction [Recovered/Resolved]
  - Oropharyngeal discomfort [Recovered/Resolved]
  - Spinal column injury [Unknown]
  - Sneezing [Recovered/Resolved]
  - Rhinorrhoea [Recovered/Resolved]
  - Hyperhidrosis [Recovered/Resolved]
  - Paraesthesia ear [Recovered/Resolved]
  - Ear discomfort [Recovered/Resolved]
  - Pruritus [Unknown]
  - Erythema [Unknown]
  - Infusion related reaction [Unknown]

NARRATIVE: CASE EVENT DATE: 20210501
